FAERS Safety Report 6758277-3 (Version None)
Quarter: 2010Q2

REPORT INFORMATION
  Report Type: 
  Country: None (occurrence: None)
  Receive Date: 20100607
  Receipt Date: 20100528
  Transmission Date: 20101027
  Serious: Yes (Hospitalization)
  Sender: FDA-Public Use
  Company Number: GB-ABBOTT-10P-167-0647634-00

PATIENT
  Sex: Male

DRUGS (7)
  1. RITONAVIR [Suspect]
     Indication: HIV INFECTION
  2. LOPINAVIR [Suspect]
     Indication: HIV INFECTION
  3. NEVIRAPINE [Suspect]
     Indication: HIV INFECTION
  4. DIDANOSINE [Suspect]
     Indication: HIV INFECTION
  5. STAVUDINE [Suspect]
     Indication: HIV INFECTION
  6. ABACAVIR [Suspect]
     Indication: HIV INFECTION
  7. LAMIVUDINE [Suspect]
     Indication: HIV INFECTION

REACTIONS (6)
  - ASCITES [None]
  - HEPATIC ENCEPHALOPATHY [None]
  - NODULAR REGENERATIVE HYPERPLASIA [None]
  - OESOPHAGEAL VARICES HAEMORRHAGE [None]
  - PORTAL HYPERTENSION [None]
  - VARICES OESOPHAGEAL [None]
